FAERS Safety Report 24766529 (Version 1)
Quarter: 2024Q4

REPORT INFORMATION
  Report Type: Report from Study
  Country: US (occurrence: US)
  Receive Date: 20241223
  Receipt Date: 20241223
  Transmission Date: 20250114
  Serious: Yes (Other)
  Sender: ALEXION PHARMACEUTICALS
  Company Number: 2024A190678

PATIENT

DRUGS (20)
  1. FASENRA [Suspect]
     Active Substance: BENRALIZUMAB
     Indication: Asthma
     Dosage: 30 MILLIGRAM
  2. FASENRA [Suspect]
     Active Substance: BENRALIZUMAB
     Dosage: 30 MILLIGRAM
     Route: 058
  3. FASENRA [Suspect]
     Active Substance: BENRALIZUMAB
     Dosage: 30 MILLIGRAM
  4. FASENRA [Suspect]
     Active Substance: BENRALIZUMAB
     Dosage: 30 MILLIGRAM
     Route: 058
  5. SYMBICORT [Concomitant]
     Active Substance: BUDESONIDE\FORMOTEROL FUMARATE DIHYDRATE
  6. ESOMEPRAZOLE [Concomitant]
     Active Substance: ESOMEPRAZOLE
  7. ROSUVASTATIN [Concomitant]
     Active Substance: ROSUVASTATIN
  8. ALBUTEROL [Concomitant]
     Active Substance: ALBUTEROL
  9. GABAPENTIN [Concomitant]
     Active Substance: GABAPENTIN
  10. HYDROCODONE [Concomitant]
     Active Substance: HYDROCODONE
  11. CHLORTHALIDONE [Concomitant]
     Active Substance: CHLORTHALIDONE
  12. LORATADINE [Concomitant]
     Active Substance: LORATADINE
  13. LOSARTAN [Concomitant]
     Active Substance: LOSARTAN
  14. METOPROLOL [Concomitant]
     Active Substance: METOPROLOL
  15. MONTELUKAST [Concomitant]
     Active Substance: MONTELUKAST SODIUM
  16. OZEMPIC [Concomitant]
     Active Substance: SEMAGLUTIDE
  17. RESTASIS [Concomitant]
     Active Substance: CYCLOSPORINE
  18. SPIRONOLACTONE [Concomitant]
     Active Substance: SPIRONOLACTONE
  19. TIZANIDINE [Concomitant]
     Active Substance: TIZANIDINE
  20. XYWAV [Concomitant]
     Active Substance: CALCIUM OXYBATE\MAGNESIUM OXYBATE\POTASSIUM OXYBATE\SODIUM OXYBATE

REACTIONS (5)
  - Peripheral venous disease [Unknown]
  - Dry eye [Unknown]
  - Peripheral swelling [Unknown]
  - Depression [Unknown]
  - Dyspnoea [Unknown]
